FAERS Safety Report 9338151 (Version 1)
Quarter: 2013Q2

REPORT INFORMATION
  Report Type: Report from Study
  Country: JP (occurrence: JP)
  Receive Date: 20130610
  Receipt Date: 20130610
  Transmission Date: 20140414
  Serious: Yes (Life-Threatening, Other)
  Sender: FDA-Public Use
  Company Number: JP-ROCHE-1232845

PATIENT
  Sex: 0

DRUGS (9)
  1. GRANISETRON [Suspect]
     Indication: VOMITING
     Dosage: PER BODY WEIGHT ON DAY 1
     Route: 042
  2. GRANISETRON [Suspect]
     Indication: NAUSEA
  3. DEXAMETHASONE PHOSPHATE [Suspect]
     Indication: NAUSEA
     Dosage: ON DAY 1 IN PLACEBO GROUP
     Route: 042
  4. DEXAMETHASONE PHOSPHATE [Suspect]
     Indication: VOMITING
     Dosage: ON DAY 2 AND 3 IN PLACEBO GROUP
     Route: 042
  5. DEXAMETHASONE PHOSPHATE [Suspect]
     Route: 042
  6. DEXAMETHASONE PHOSPHATE [Suspect]
     Dosage: ON DAY 2 IN FOSAPREPITANT GROUP
     Route: 042
  7. DEXAMETHASONE PHOSPHATE [Suspect]
     Dosage: ON DAY 3 IN FOSAPREPITANT GROUP
     Route: 042
  8. FOSAPREPITANT [Suspect]
     Indication: NAUSEA
     Route: 042
  9. FOSAPREPITANT [Suspect]
     Indication: VOMITING

REACTIONS (10)
  - Leukopenia [Unknown]
  - Decreased appetite [Unknown]
  - Neutropenia [Unknown]
  - Nausea [Unknown]
  - Constipation [Unknown]
  - Thrombocytopenia [Unknown]
  - Hiccups [Unknown]
  - Malaise [Unknown]
  - Anaemia [Unknown]
  - Blood urea increased [Unknown]
